FAERS Safety Report 4967172-1 (Version None)
Quarter: 2006Q2

REPORT INFORMATION
  Report Type: 
  Country: None (occurrence: None)
  Receive Date: 20060410
  Receipt Date: 20060207
  Transmission Date: 20061013
  Serious: Yes (Hospitalization)
  Sender: FDA-Public Use
  Company Number: 2006CG00265

PATIENT
  Age: 80 Year
  Sex: Female
  Weight: 49 kg

DRUGS (10)
  1. NEXIUM [Suspect]
     Route: 048
     Dates: start: 20030101, end: 20051222
  2. KENZEN [Suspect]
     Route: 048
     Dates: start: 20050901, end: 20051222
  3. FUROSEMIDE [Suspect]
     Route: 048
     Dates: start: 20030101, end: 20051222
  4. FLECAINIDE ACETATE [Suspect]
     Route: 048
     Dates: start: 20051101, end: 20051222
  5. KARDEGIC [Suspect]
     Route: 048
     Dates: start: 20030101, end: 20051222
  6. VASTEN [Concomitant]
     Route: 048
     Dates: end: 20051222
  7. TRIVASTAL [Concomitant]
     Dates: end: 20051222
  8. OROCAL [Concomitant]
     Dates: end: 20051222
  9. TORENTAL [Concomitant]
     Dates: end: 20051222
  10. PNEUMO 23 [Concomitant]
     Dates: start: 20051201, end: 20051201

REACTIONS (2)
  - AGRANULOCYTOSIS [None]
  - OESOPHAGEAL CANDIDIASIS [None]
